FAERS Safety Report 4331294-9 (Version None)
Quarter: 2004Q1

REPORT INFORMATION
  Report Type: 
  Country: None (occurrence: None)
  Receive Date: 20040329
  Receipt Date: 20040316
  Transmission Date: 20041129
  Serious: Yes (Other)
  Sender: FDA-Public Use
  Company Number: US067922

PATIENT
  Age: 53 Year
  Sex: Female
  Weight: 54.9 kg

DRUGS (9)
  1. ARANESP [Suspect]
     Indication: ANAEMIA
     Dosage: 200 MCG, 1 IN 2 WEEKS, SC
     Route: 058
     Dates: start: 20031121, end: 20031205
  2. ACYCLOVIR [Concomitant]
  3. AMOXICILLIN [Concomitant]
  4. ALBUTEROL SULFATE [Concomitant]
  5. MOXIFLOXACIN [Concomitant]
  6. FLUOXETINE [Concomitant]
  7. CYCLOPHOSPHAMIDE [Concomitant]
  8. CISPLATIN [Concomitant]
  9. DOXORUBICIN HCL [Concomitant]

REACTIONS (4)
  - APLASIA PURE RED CELL [None]
  - BLOOD IRON INCREASED [None]
  - BONE MARROW DEPRESSION [None]
  - RED BLOOD CELL SEDIMENTATION RATE INCREASED [None]
